FAERS Safety Report 5675450-6 (Version None)
Quarter: 2008Q2

REPORT INFORMATION
  Report Type: 
  Country: None (occurrence: None)
  Receive Date: 20080311
  Receipt Date: 20071113
  Transmission Date: 20081010
  Serious: No
  Sender: FDA-Public Use
  Company Number: 002#1#2007-00324

PATIENT

DRUGS (1)
  1. NEUPRO [Suspect]
     Indication: DRUG USE FOR UNKNOWN INDICATION
     Dosage: MG/24H,1 IN 1 D, TRANSDERMAL
     Route: 062

REACTIONS (1)
  - DERMATITIS EXFOLIATIVE [None]
